FAERS Safety Report 9342859 (Version 1)
Quarter: 2013Q2

REPORT INFORMATION
  Report Type: Spontaneous
  Country: MX (occurrence: MX)
  Receive Date: 20130611
  Receipt Date: 20130611
  Transmission Date: 20140414
  Serious: Yes (Other)
  Sender: FDA-Public Use
  Company Number: MX-GLAXOSMITHKLINE-A1026337A

PATIENT
  Age: 64 Year
  Sex: Female

DRUGS (2)
  1. AROPAX [Suspect]
     Indication: DEPRESSION
     Dosage: 20MG PER DAY
     Route: 048
     Dates: start: 201211
  2. MIRTAZAPINE [Concomitant]

REACTIONS (2)
  - Oesophageal ulcer [Recovered/Resolved]
  - Surgery [Recovered/Resolved]
